FAERS Safety Report 6722939-4 (Version None)
Quarter: 2010Q2

REPORT INFORMATION
  Report Type: 
  Country: None (occurrence: None)
  Receive Date: 20100513
  Receipt Date: 20100504
  Transmission Date: 20101027
  Serious: Yes (Hospitalization)
  Sender: FDA-Public Use
  Company Number: US-BIOGENIDEC-2010BI015020

PATIENT
  Age: 56 Year
  Sex: Female
  Weight: 50 kg

DRUGS (9)
  1. TYSABRI [Suspect]
     Indication: MULTIPLE SCLEROSIS
     Route: 042
     Dates: start: 20091202, end: 20100101
  2. VITAMIN C [Concomitant]
  3. VITAMIN D [Concomitant]
     Indication: SUPPLEMENTATION THERAPY
  4. FLUOXETINE [Concomitant]
     Indication: DEPRESSION
  5. ATENOLOL [Concomitant]
     Indication: HYPERTENSION
     Route: 042
     Dates: start: 20091202, end: 20100101
  6. OXYBUTYNIN [Concomitant]
     Indication: BLADDER DISORDER
  7. IBUPROFEN [Concomitant]
     Indication: PAIN
  8. PROMETHAZINE [Concomitant]
     Indication: NAUSEA
  9. GABAPENTIN [Concomitant]
     Indication: PAIN

REACTIONS (7)
  - FALL [None]
  - LOSS OF CONTROL OF LEGS [None]
  - MAJOR DEPRESSION [None]
  - MULTIPLE SCLEROSIS [None]
  - SPEECH DISORDER [None]
  - TOOTH LOSS [None]
  - WEIGHT DECREASED [None]
